FAERS Safety Report 8620757-3 (Version None)
Quarter: 2012Q3

REPORT INFORMATION
  Report Type: 
  Country: None (occurrence: None)
  Receive Date: 20120824
  Receipt Date: 20120813
  Transmission Date: 20120928
  Serious: Yes (Hospitalization)
  Sender: FDA-Public Use
  Company Number: JP-ROCHE-1063218

PATIENT
  Sex: Female
  Weight: 55 kg

DRUGS (8)
  1. FAMOTIDINE [Concomitant]
     Route: 048
  2. PREDNISOLONE [Concomitant]
     Indication: RHEUMATOID ARTHRITIS
     Route: 048
     Dates: start: 20110524
  3. CELEBREX [Concomitant]
     Indication: RHEUMATOID ARTHRITIS
     Route: 048
  4. ACTEMRA [Suspect]
     Indication: RHEUMATOID ARTHRITIS
     Route: 041
     Dates: start: 20120131, end: 20120327
  5. PROGRAF [Concomitant]
     Indication: RHEUMATOID ARTHRITIS
     Route: 048
     Dates: start: 20110913, end: 20120131
  6. OLMESARTAN MEDOXOMIL [Concomitant]
     Indication: HYPERTENSION
     Route: 048
  7. PERSANTINE [Concomitant]
     Indication: SCLERODERMA
     Route: 048
     Dates: start: 20110802
  8. PROCYLIN [Concomitant]
     Indication: SCLERODERMA
     Route: 048
     Dates: start: 20110524

REACTIONS (2)
  - ENCEPHALITIS [None]
  - INFLUENZA [None]
